FAERS Safety Report 8612799-9 (Version None)
Quarter: 2012Q3

REPORT INFORMATION
  Report Type: 
  Country: None (occurrence: None)
  Receive Date: 20120822
  Receipt Date: 20120131
  Transmission Date: 20120928
  Serious: No
  Sender: FDA-Public Use
  Company Number: US-ASTRAZENECA-2009UW14047

PATIENT
  Age: 54 Year
  Sex: Male
  Weight: 136.1 kg

DRUGS (17)
  1. SYMBICORT [Suspect]
     Dosage: 160/4.5 UG, 2 PUFFS BID
     Route: 055
     Dates: start: 20110801
  2. PULMICORT FLEXHALER [Concomitant]
  3. FUROSEMIDE [Concomitant]
  4. DIAZEPAM [Concomitant]
  5. SYMBICORT [Suspect]
     Dosage: 160/4.5 UG, 2 PUFFS BID
     Route: 055
     Dates: start: 20111226
  6. SYMBICORT [Suspect]
     Dosage: 160/4.5 UG, 2 PUFFS BID
     Route: 055
     Dates: start: 20111024
  7. SYMBICORT [Suspect]
     Dosage: 160/4.5 UG, 2 PUFFS BID
     Route: 055
     Dates: start: 20110701
  8. SYMBICORT [Suspect]
     Dosage: 160/4.5 UG, 2 PUFFS BID
     Route: 055
  9. SYMBICORT [Suspect]
     Dosage: 160/4.5 UG, 2 PUFFS BID
     Route: 055
     Dates: start: 20111127
  10. VERAMYST [Concomitant]
  11. BUMETANIDE [Concomitant]
  12. POTASSIUM CHLORIDE [Concomitant]
  13. SYMBICORT [Suspect]
     Dosage: 160/4.5 UG, 2 PUFFS BID
     Route: 055
     Dates: start: 20090418
  14. DOXYCYCLINE HCL [Concomitant]
  15. SYMBICORT [Suspect]
     Dosage: 160/4.5 UG, 2 PUFFS BID
     Route: 055
     Dates: start: 20110901
  16. PROVENTIL [Concomitant]
  17. SYMBICORT [Suspect]
     Indication: ASTHMA
     Dosage: 160/4.5 UG, 2 PUFFS BID
     Route: 055
     Dates: start: 20090325

REACTIONS (5)
  - NASOPHARYNGITIS [None]
  - ILL-DEFINED DISORDER [None]
  - BRADYPHRENIA [None]
  - DYSPNOEA [None]
  - INCORRECT DOSE ADMINISTERED BY DEVICE [None]
